FAERS Safety Report 5246874-6 (Version None)
Quarter: 2007Q1

REPORT INFORMATION
  Report Type: 
  Country: None (occurrence: None)
  Receive Date: 20070226
  Receipt Date: 20070214
  Transmission Date: 20070707
  Serious: Yes (Other)
  Sender: FDA-Public Use
  Company Number: US-PFIZER INC-2007012802

PATIENT
  Sex: Female
  Weight: 87.1 kg

DRUGS (2)
  1. GEODON [Suspect]
     Indication: BIPOLAR DISORDER
  2. AZITHROMYCIN [Concomitant]

REACTIONS (3)
  - DYSURIA [None]
  - FEELING DRUNK [None]
  - GAIT DISTURBANCE [None]
